FAERS Safety Report 17916260 (Version 1)
Quarter: 2020Q2

REPORT INFORMATION
  Report Type: Spontaneous
  Country: US (occurrence: US)
  Receive Date: 20200619
  Receipt Date: 20200619
  Transmission Date: 20200714
  Serious: No
  Sender: FDA-Public Use
  Company Number: US-FRESENIUS KABI-FK202006048

PATIENT
  Age: 67 Year
  Sex: Male

DRUGS (1)
  1. LACTULOSE 10 G/ 15 ML [Suspect]
     Active Substance: LACTULOSE
     Indication: PRODUCT USED FOR UNKNOWN INDICATION
     Dosage: CAP FULL
     Route: 065
     Dates: start: 202006

REACTIONS (1)
  - Flatulence [Unknown]
